FAERS Safety Report 5248958-5 (Version None)
Quarter: 2007Q1

REPORT INFORMATION
  Report Type: 
  Country: None (occurrence: None)
  Receive Date: 20070228
  Receipt Date: 20060414
  Transmission Date: 20070707
  Serious: No
  Sender: FDA-Public Use
  Company Number: US-GLAXOSMITHKLINE-A0601834A

PATIENT
  Sex: Male

DRUGS (2)
  1. VALTREX [Suspect]
     Dosage: 500MG TWICE PER DAY
     Route: 048
     Dates: start: 20051001, end: 20061101
  2. ASACOL [Concomitant]

REACTIONS (2)
  - HERPES VIRUS INFECTION [None]
  - PRURITUS [None]
